FAERS Safety Report 25254612 (Version 1)
Quarter: 2025Q2

REPORT INFORMATION
  Report Type: Spontaneous
  Country: CN (occurrence: CN)
  Receive Date: 20250430
  Receipt Date: 20250430
  Transmission Date: 20250717
  Serious: Yes (Other)
  Sender: ALEXION PHARMACEUTICALS
  Company Number: CN-ASTRAZENECA-202504CHN020706CN

PATIENT
  Age: 38 Year
  Weight: 85 kg

DRUGS (3)
  1. DAPAGLIFLOZIN [Suspect]
     Active Substance: DAPAGLIFLOZIN
     Indication: Type 2 diabetes mellitus
     Dosage: 10 MILLIGRAM, QD
  2. METFORMIN [Concomitant]
     Active Substance: METFORMIN HYDROCHLORIDE
     Dosage: 0.5 GRAM, BID, IN THE MORNING AND EVENING
  3. INSULIN GLARGINE [Concomitant]
     Active Substance: INSULIN GLARGINE

REACTIONS (13)
  - Ketoacidosis [Recovering/Resolving]
  - Thirst [Unknown]
  - Polyuria [Unknown]
  - Polydipsia [Unknown]
  - Hypotension [Unknown]
  - Acute kidney injury [Unknown]
  - Renal failure [Unknown]
  - Urosepsis [Unknown]
  - Pyelonephritis [Unknown]
  - Hyperinsulinaemic hypoglycaemia [Unknown]
  - Genital infection fungal [Unknown]
  - Low density lipoprotein increased [Unknown]
  - Bladder cancer [Unknown]
